FAERS Safety Report 5831608-4 (Version None)
Quarter: 2008Q3

REPORT INFORMATION
  Report Type: 
  Country: None (occurrence: None)
  Receive Date: 20080801
  Receipt Date: 20080722
  Transmission Date: 20090109
  Serious: Yes (Other)
  Sender: FDA-Public Use
  Company Number: IE-PFIZER INC-2008062539

PATIENT
  Sex: Female

DRUGS (2)
  1. CHANTIX [Suspect]
     Route: 048
  2. NASAL PREPARATIONS [Concomitant]

REACTIONS (1)
  - HOMICIDAL IDEATION [None]
